FAERS Safety Report 15264475 (Version 1)
Quarter: 2018Q3

REPORT INFORMATION
  Report Type: Spontaneous
  Country: US (occurrence: US)
  Receive Date: 20180722
  Receipt Date: 20180722
  Transmission Date: 20181010
  Serious: Yes (Other)
  Sender: FDA-Public Use
  Company Number: None

PATIENT
  Age: 62 Year
  Sex: Female
  Weight: 87.75 kg

DRUGS (7)
  1. OXYCODONE [Concomitant]
     Active Substance: OXYCODONE
  2. OXYCONTIN [Concomitant]
     Active Substance: OXYCODONE HYDROCHLORIDE
  3. LISINOPRIL. [Concomitant]
     Active Substance: LISINOPRIL
  4. XTAMPZA [Suspect]
     Active Substance: OXYCODONE
     Indication: PAIN
     Dosage: ?          QUANTITY:1 DF DOSAGE FORM;?
     Route: 048
     Dates: start: 20180720, end: 20180722
  5. FENOFIBRATE. [Concomitant]
     Active Substance: FENOFIBRATE
  6. CLONAZEPAM. [Concomitant]
     Active Substance: CLONAZEPAM
  7. DICLOFENAC SODIUM 3% [Concomitant]

REACTIONS (6)
  - Pruritus [None]
  - Musculoskeletal pain [None]
  - Headache [None]
  - Insurance issue [None]
  - Burning sensation [None]
  - Dysuria [None]

NARRATIVE: CASE EVENT DATE: 20180722
